FAERS Safety Report 9301484 (Version 1)
Quarter: 2013Q2

REPORT INFORMATION
  Report Type: Spontaneous
  Country: US (occurrence: None)
  Receive Date: 20130520
  Receipt Date: 20130520
  Transmission Date: 20140414
  Serious: Yes (Other)
  Sender: FDA-Public Use
  Company Number: None

PATIENT
  Age: 22 Year
  Sex: Male
  Weight: 69.5 kg

DRUGS (1)
  1. SUBOXONE [Suspect]
     Indication: DRUG DEPENDENCE
     Dosage: 8/2 MG EVERY DAY SUB LINGUAL
     Route: 060

REACTIONS (3)
  - Paraesthesia [None]
  - Stomatitis [None]
  - Drug hypersensitivity [None]
